FAERS Safety Report 4897884-X (Version None)
Quarter: 2006Q1

REPORT INFORMATION
  Report Type: 
  Country: None (occurrence: None)
  Receive Date: 20060130
  Receipt Date: 20060130
  Transmission Date: 20060701
  Serious: Yes (Death, Hospitalization, Other)
  Sender: FDA-Public Use
  Company Number: None

PATIENT
  Sex: Male
  Weight: 13 kg

DRUGS (27)
  1. CARBOPLATIN [Suspect]
     Indication: NEUROBLASTOMA
     Dosage: 980 MG
     Dates: start: 20060105, end: 20060108
  2. ETOPOSIDE [Suspect]
     Dosage: 780 MG
     Dates: start: 20060105, end: 20060108
  3. MELPHALAN [Suspect]
     Dosage: 121.8 MG
     Dates: start: 20060105, end: 20060107
  4. ACETAMINOPHEN (TYLENOL) [Concomitant]
  5. ACYCLOVIR [Concomitant]
  6. AMBISOME [Concomitant]
  7. ANTICOAGULANT CITRATE DEXTROSE (ACD) [Concomitant]
  8. CALCITRIOL [Concomitant]
  9. CALCIUM GLUCONATE SYRINGE PUMP [Concomitant]
  10. CEFTAZIDIME [Concomitant]
  11. CHLORHEXIDINE LIQUID [Concomitant]
  12. DIPHENHYDRAMINE (BENEDRYL) [Concomitant]
  13. FACTOR VIIA, RECOMBINANT (NOVOSEVEN) [Concomitant]
  14. FENTANYL [Concomitant]
  15. FILGRASTIM [Concomitant]
  16. FLUCONAZOLE [Concomitant]
  17. FUROSEMIDE [Concomitant]
  18. HYDOCORTISONE SODIUM SUCCINATE [Concomitant]
  19. DILAUDID [Concomitant]
  20. PREVACID [Concomitant]
  21. ATIVAN [Concomitant]
  22. MEROPENEM [Concomitant]
  23. VERSED [Concomitant]
  24. ODANSETRON [Concomitant]
  25. TOBRAMYCIN [Concomitant]
  26. VANCOMYCIN (MOUTHWASH) [Concomitant]
  27. VECURONIUM BROMIDE [Concomitant]

REACTIONS (18)
  - ALANINE AMINOTRANSFERASE INCREASED [None]
  - ASPARTATE AMINOTRANSFERASE INCREASED [None]
  - BACTERIAL INFECTION [None]
  - BLOOD CREATININE INCREASED [None]
  - BLOOD UREA INCREASED [None]
  - BRADYCARDIA [None]
  - CARDIAC FAILURE [None]
  - CARDIO-RESPIRATORY ARREST [None]
  - DIALYSIS [None]
  - HAEMOGLOBIN DECREASED [None]
  - HYPOTENSION [None]
  - MENTAL STATUS CHANGES [None]
  - OEDEMA [None]
  - POST PROCEDURAL COMPLICATION [None]
  - RESPIRATORY DISTRESS [None]
  - RESPIRATORY FAILURE [None]
  - STEM CELL TRANSPLANT [None]
  - URINE OUTPUT DECREASED [None]
